FAERS Safety Report 7744135-4 (Version None)
Quarter: 2011Q3

REPORT INFORMATION
  Report Type: 
  Country: None (occurrence: None)
  Receive Date: 20110912
  Receipt Date: 20110901
  Transmission Date: 20111222
  Serious: Yes (Other)
  Sender: FDA-Public Use
  Company Number: GB-JNJFOC-20110901873

PATIENT
  Age: 12 Year
  Sex: Female

DRUGS (9)
  1. CAMPATH [Suspect]
     Indication: PRODUCT USED FOR UNKNOWN INDICATION
     Dosage: ONE DOSE
     Route: 065
  2. PREDNISOLONE [Suspect]
     Indication: WEGENER'S GRANULOMATOSIS
     Route: 048
  3. RITUXIMAB [Suspect]
     Indication: PRODUCT USED FOR UNKNOWN INDICATION
     Dosage: 2 DOSES
     Route: 065
  4. CYCLOPHOSPHAMIDE [Suspect]
     Dosage: A TOTAL OF 3 DOSED
     Route: 042
  5. METHYLPREDNISOLONE [Suspect]
     Indication: WEGENER'S GRANULOMATOSIS
     Route: 042
  6. CYCLOPHOSPHAMIDE [Suspect]
     Indication: WEGENER'S GRANULOMATOSIS
     Dosage: WEEKLY TREATMENTS FOR ANOTHER 2-4 DOSES
     Route: 042
  7. CYCLOPHOSPHAMIDE [Suspect]
     Dosage: 1-2 MG/KG/DAY FOR 3-6 MONTHS
     Route: 048
  8. CYCLOSPORINE [Suspect]
     Indication: IMMUNOSUPPRESSION
     Route: 065
  9. INFLIXIMAB, RECOMBINANT [Suspect]
     Indication: PRODUCT USED FOR UNKNOWN INDICATION
     Dosage: ONE DOSE
     Route: 042

REACTIONS (7)
  - LOWER RESPIRATORY TRACT INFECTION [None]
  - HEARING IMPAIRED [None]
  - BRONCHOSTENOSIS [None]
  - NASAL SEPTUM DISORDER [None]
  - PNEUMOTHORAX [None]
  - BRONCHIECTASIS [None]
  - OESOPHAGEAL CANDIDIASIS [None]
